FAERS Safety Report 7904495-8 (Version None)
Quarter: 2011Q4

REPORT INFORMATION
  Report Type: 
  Country: None (occurrence: None)
  Receive Date: 20111109
  Receipt Date: 20111031
  Transmission Date: 20120403
  Serious: Yes (Hospitalization)
  Sender: FDA-Public Use
  Company Number: GB-ASTRAZENECA-2011SE65581

PATIENT
  Age: 60 Year
  Sex: Male

DRUGS (9)
  1. KENALOG [Suspect]
     Indication: ROTATOR CUFF SYNDROME
     Route: 014
     Dates: start: 20090929, end: 20090929
  2. ACETAMINOPHEN [Concomitant]
  3. ATROVENT [Concomitant]
  4. LIDOCAINE HCL [Suspect]
     Indication: ROTATOR CUFF SYNDROME
     Route: 014
     Dates: start: 20090929, end: 20090929
  5. LANSOPRAZOLE [Concomitant]
  6. MONTELUKAST SODIUM [Concomitant]
  7. CARBAMAZEPINE [Concomitant]
  8. VENTOLIN [Concomitant]
  9. FLUTICASONE PROPIONATE/SALMETEROL [Concomitant]

REACTIONS (5)
  - MUSCLE TWITCHING [None]
  - WHEEZING [None]
  - DYSPNOEA [None]
  - DYSKINESIA [None]
  - DIZZINESS [None]
